FAERS Safety Report 8349658-5 (Version None)
Quarter: 2012Q2

REPORT INFORMATION
  Report Type: 
  Country: None (occurrence: None)
  Receive Date: 20120510
  Receipt Date: 20120507
  Transmission Date: 20120825
  Serious: Yes (Life-Threatening, Hospitalization)
  Sender: FDA-Public Use
  Company Number: PHHO2012ZA001516

PATIENT
  Sex: Female
  Weight: 102.1 kg

DRUGS (16)
  1. AFINITOR [Suspect]
     Dosage: CODE NOT BROKEN
     Dates: start: 20120131
  2. BLINDED NO TREATMENT RECEIVED [Suspect]
     Dosage: CODE NOT BROKEN
     Dates: start: 20120131
  3. PLACEBO [Suspect]
     Dosage: CODE NOT BROKEN
     Dates: start: 20120131
  4. ASTHAVENT [Concomitant]
     Dosage: UNK
     Dates: start: 20090101
  5. RIDAQ [Concomitant]
     Indication: HYPERTENSION
     Dosage: 25 MG, Q96H
     Dates: start: 20070101
  6. PACLITAXEL [Suspect]
     Dosage: 160 MG, UNK
     Dates: start: 20120131
  7. PARAMET [Concomitant]
     Indication: BREAST PAIN
     Dosage: 500 MG, PRN
     Route: 048
     Dates: start: 20110101
  8. BLINDED NO TREATMENT RECEIVED [Suspect]
     Indication: BREAST CANCER METASTATIC
     Dosage: CODE NOT BROKEN
     Route: 048
     Dates: start: 20111128, end: 20120109
  9. PACLITAXEL [Suspect]
     Indication: BREAST CANCER METASTATIC
     Dosage: 160 MG, UNK
     Dates: start: 20111128, end: 20120110
  10. COMPARATOR TRASTUZUMAB [Suspect]
     Dosage: 214.8 MG, UNK
     Dates: start: 20120131
  11. PLACEBO [Suspect]
     Indication: BREAST CANCER METASTATIC
     Dosage: CODE NOT BROKEN
     Route: 048
     Dates: start: 20111128, end: 20120109
  12. ZOCOR [Concomitant]
     Indication: HYPERCHOLESTEROLAEMIA
     Dosage: 10 MG, QD
     Route: 048
     Dates: start: 20111122
  13. AFINITOR [Suspect]
     Indication: BREAST CANCER METASTATIC
     Dosage: CODE NOT BROKEN
     Route: 048
     Dates: start: 20111128, end: 20120109
  14. BECLATE [Concomitant]
     Indication: ASTHMA
     Dosage: UNK
     Dates: start: 20090101
  15. PERINDOPRIL ERBUMINE [Concomitant]
     Indication: HYPERTENSION
     Dosage: UNK
     Dates: start: 20110901
  16. COMPARATOR TRASTUZUMAB [Suspect]
     Indication: BREAST CANCER METASTATIC
     Dosage: 215 MG, UNK
     Dates: start: 20111128, end: 20120103

REACTIONS (1)
  - GASTRITIS [None]
